FAERS Safety Report 5025026-9 (Version None)
Quarter: 2006Q2

REPORT INFORMATION
  Report Type: 
  Country: None (occurrence: None)
  Receive Date: 20060608
  Receipt Date: 20060608
  Transmission Date: 20061013
  Serious: Yes (Hospitalization, Disabling)
  Sender: FDA-Public Use
  Company Number: None

PATIENT
  Age: 29 Year
  Sex: Female

DRUGS (1)
  1. CHLOROPROACINE HCL [Suspect]
     Indication: SURGERY
     Dosage: 90 MG ONCE INTRATHECAL
     Route: 037
     Dates: start: 20010621

REACTIONS (1)
  - CAUDA EQUINA SYNDROME [None]
